FAERS Safety Report 9537907 (Version 1)
Quarter: 2013Q3

REPORT INFORMATION
  Report Type: Report from Study
  Country: US (occurrence: US)
  Receive Date: 20130919
  Receipt Date: 20130919
  Transmission Date: 20140515
  Serious: Yes (Hospitalization)
  Sender: FDA-Public Use
  Company Number: PHHY2013US103474

PATIENT
  Age: 48 Year
  Sex: Male

DRUGS (9)
  1. LUCENTIS [Suspect]
     Indication: DIABETIC RETINAL OEDEMA
     Dosage: 0.3 MG, (IN BOTH EYES)
  2. DOXAZOSIN TABLETS [Suspect]
     Dosage: 4 MG, QD
  3. FUROSEMIDE [Suspect]
     Dosage: 40 MG, QD
     Route: 048
  4. AMLODIPINE [Concomitant]
     Dosage: 1 DF, QD
  5. ASPIRIN [Concomitant]
     Dosage: 1 DF, QD
  6. CLONIDINE [Concomitant]
     Dosage: 0.3 MG, QD
  7. HUMULIN [Concomitant]
     Dosage: 100 U, BID
     Route: 048
  8. MINOXIDIL [Concomitant]
     Dosage: 2.5 MG, BID
  9. MINOXIDIL [Concomitant]
     Dosage: 25 MG, QID

REACTIONS (6)
  - Fluid retention [Unknown]
  - Localised infection [Unknown]
  - Hypoxia [Unknown]
  - Renal disorder [Unknown]
  - Vision blurred [Unknown]
  - Vitreous floaters [Unknown]
